FAERS Safety Report 26033797 (Version 2)
Quarter: 2025Q4

REPORT INFORMATION
  Report Type: Spontaneous
  Country: EU (occurrence: EU)
  Receive Date: 20251112
  Receipt Date: 20251231
  Transmission Date: 20260118
  Serious: Yes (Other)
  Sender: GALDERMA
  Company Number: EU-GALDERMA-DE2025022657

PATIENT

DRUGS (1)
  1. NEMLUVIO [Suspect]
     Active Substance: NEMOLIZUMAB-ILTO
     Indication: Neurodermatitis
     Dosage: 60 MILLIGRAM, (LOADING DOSE)
     Route: 058
     Dates: start: 20251001, end: 20251001

REACTIONS (6)
  - Angioedema [Unknown]
  - Type II hypersensitivity [Unknown]
  - Type III immune complex mediated reaction [Unknown]
  - Staphylococcal impetigo [Recovered/Resolved]
  - Fatigue [Unknown]
  - Urticaria chronic [Unknown]

NARRATIVE: CASE EVENT DATE: 20251001
